FAERS Safety Report 9299809 (Version 1)
Quarter: 2012Q4

REPORT INFORMATION
  Report Type: Spontaneous
  Country: FR (occurrence: None)
  Receive Date: 20121116
  Receipt Date: 20121116
  Transmission Date: 20130627
  Serious: Yes (Other)
  Sender: FDA-Public Use
  Company Number: 2012-2375

PATIENT
  Age: 50 Year
  Sex: Female
  Weight: 88 kg

DRUGS (8)
  1. SOMATULINE [Suspect]
     Indication: ACROMEGALY
     Dosage: (90 mg, 1 in 1 M)
     Route: 058
     Dates: start: 200603, end: 200906
  2. SOMATULINE [Suspect]
     Indication: ACROMEGALY
     Dosage: (60 mg, 1 in 1 M)
     Route: 058
     Dates: start: 201006
  3. SOMATULINE [Suspect]
     Indication: ACROMEGALY
     Dosage: (90 mg, 1 in 1 M)
     Route: 058
     Dates: start: 201010, end: 201105
  4. TEMERIT (NEBIVOLOL) [Concomitant]
  5. RAMIPRIL (RAMIPRIL) [Concomitant]
  6. KARDEGIC (ACETYLSALICYLATE LYSINE) [Concomitant]
  7. TERDIFERON (FERROUS SULFATE) [Concomitant]
  8. UVEDOSE (COLECALCIFEROL) [Concomitant]

REACTIONS (6)
  - Hepatocellular injury [None]
  - Hepatic steatosis [None]
  - Hepatitis cholestatic [None]
  - Weight increased [None]
  - Post procedural stroke [None]
  - Weight decreased [None]
